FAERS Safety Report 10931106 (Version 3)
Quarter: 2015Q2

REPORT INFORMATION
  Report Type: Spontaneous
  Country: GR (occurrence: GR)
  Receive Date: 20150319
  Receipt Date: 20150415
  Transmission Date: 20150821
  Serious: Yes (Other)
  Sender: FDA-Public Use
  Company Number: GR-SA-2015SA033980

PATIENT
  Age: 76 Year
  Sex: Male

DRUGS (2)
  1. COAPROVEL [Suspect]
     Active Substance: HYDROCHLOROTHIAZIDE\IRBESARTAN
     Route: 065
     Dates: start: 2005
  2. XATRAL [Concomitant]
     Active Substance: ALFUZOSIN

REACTIONS (5)
  - Blood pressure increased [Unknown]
  - Accident [Unknown]
  - Joint injury [Unknown]
  - Dizziness [Unknown]
  - Head discomfort [Unknown]

NARRATIVE: CASE EVENT DATE: 2015
